FAERS Safety Report 9453230 (Version 1)
Quarter: 2013Q3

REPORT INFORMATION
  Report Type: Spontaneous
  Country: US (occurrence: US)
  Receive Date: 20130812
  Receipt Date: 20130812
  Transmission Date: 20140515
  Serious: Yes (Hospitalization)
  Sender: FDA-Public Use
  Company Number: US-PFIZER INC-2013233099

PATIENT
  Age: 66 Year
  Sex: Female
  Weight: 52.2 kg

DRUGS (2)
  1. MINIPRESS [Suspect]
     Indication: RAYNAUD^S PHENOMENON
     Dosage: 1 MG, UNK
     Dates: end: 201308
  2. NORVASC [Concomitant]
     Dosage: UNK

REACTIONS (4)
  - Hip fracture [Unknown]
  - Fall [Unknown]
  - Injury [Unknown]
  - Off label use [Unknown]
